FAERS Safety Report 9296977 (Version 1)
Quarter: 2013Q2

REPORT INFORMATION
  Report Type: Spontaneous
  Country: TR (occurrence: TR)
  Receive Date: 20130518
  Receipt Date: 20130518
  Transmission Date: 20140414
  Serious: Yes (Hospitalization)
  Sender: FDA-Public Use
  Company Number: TR-TEVA-403775ISR

PATIENT
  Age: 53 Year
  Sex: Female

DRUGS (4)
  1. FLUOXETINE [Suspect]
     Indication: RESTLESS LEGS SYNDROME
     Dosage: 20 MILLIGRAM DAILY;
     Route: 065
  2. ERGOTAMINE [Interacting]
     Indication: MIGRAINE
     Dosage: 1.5 MILLIGRAM DAILY;
     Route: 065
  3. CLARITHROMYCIN [Interacting]
     Indication: LOWER RESPIRATORY TRACT INFECTION
     Dosage: 1000 MILLIGRAM DAILY;
     Route: 065
  4. PRAMIPEXOLE [Concomitant]
     Indication: RESTLESS LEGS SYNDROME
     Dosage: .25 MILLIGRAM DAILY;
     Route: 065

REACTIONS (4)
  - Stress cardiomyopathy [Recovering/Resolving]
  - Toxicity to various agents [Recovering/Resolving]
  - Drug interaction [Recovered/Resolved]
  - Electrocardiogram QT prolonged [Unknown]
